FAERS Safety Report 17892599 (Version 2)
Quarter: 2020Q2

REPORT INFORMATION
  Report Type: Spontaneous
  Country: US (occurrence: US)
  Receive Date: 20200612
  Receipt Date: 20200625
  Transmission Date: 20200714
  Serious: Yes (Other)
  Sender: FDA-Public Use
  Company Number: US-GILEAD-2020-0470904

PATIENT
  Age: 72 Year
  Sex: Female
  Weight: 92 kg

DRUGS (4)
  1. REMDESIVIR. [Suspect]
     Active Substance: REMDESIVIR
     Indication: PNEUMONIA
  2. REMDESIVIR. [Suspect]
     Active Substance: REMDESIVIR
     Indication: COVID-19
     Dosage: 200 MG, ONCE
     Route: 042
     Dates: start: 20200512, end: 20200512
  3. REMDESIVIR. [Suspect]
     Active Substance: REMDESIVIR
     Indication: RESPIRATORY FAILURE
     Dosage: 100 MG, QD
     Route: 042
     Dates: start: 20200513, end: 20200516
  4. PLASMA [Concomitant]
     Active Substance: HUMAN PLASMA
     Dosage: UNK
     Dates: start: 20200515, end: 20200516

REACTIONS (4)
  - Cerebrovascular accident [Unknown]
  - Depressed level of consciousness [Recovered/Resolved]
  - Hemiparesis [Recovered/Resolved]
  - Blood creatinine increased [Unknown]

NARRATIVE: CASE EVENT DATE: 20200512
